FAERS Safety Report 7058777-5 (Version None)
Quarter: 2010Q4

REPORT INFORMATION
  Report Type: 
  Country: None (occurrence: None)
  Receive Date: 20101022
  Receipt Date: 20101015
  Transmission Date: 20110411
  Serious: Yes (Hospitalization)
  Sender: FDA-Public Use
  Company Number: DE-ABBOTT-10P-062-0678523-00

PATIENT
  Age: 60 Year
  Sex: Male
  Weight: 131 kg

DRUGS (1)
  1. ZEMPLAR [Suspect]
     Indication: SPIDER VEIN
     Dosage: 1 IN 1 WEEKS, 04-NOV-2009

REACTIONS (1)
  - SKIN ULCER [None]
